FAERS Safety Report 15469307 (Version 3)
Quarter: 2021Q4

REPORT INFORMATION
  Report Type: Spontaneous
  Country: US (occurrence: None)
  Receive Date: 20181005
  Receipt Date: 20211203
  Transmission Date: 20220303
  Serious: Yes (Death, Congenital Anomaly, Other)
  Sender: FDA-Public Use
  Company Number: 2018SF25455

PATIENT
  Age: 19811 Day
  Sex: Female
  Weight: 70.8 kg

DRUGS (77)
  1. PRILOSEC [Suspect]
     Active Substance: OMEPRAZOLE MAGNESIUM
     Indication: Gastrooesophageal reflux disease
     Dosage: GENERIC
     Route: 048
     Dates: start: 20060505
  2. PRILOSEC [Suspect]
     Active Substance: OMEPRAZOLE MAGNESIUM
     Indication: Gastrooesophageal reflux disease
     Route: 048
     Dates: start: 2009, end: 2011
  3. PRILOSEC [Suspect]
     Active Substance: OMEPRAZOLE MAGNESIUM
     Indication: Gastrooesophageal reflux disease
     Dosage: GENERIC
     Route: 065
     Dates: start: 2009, end: 2011
  4. PRILOSEC [Suspect]
     Active Substance: OMEPRAZOLE MAGNESIUM
     Indication: Gastrooesophageal reflux disease
     Route: 048
     Dates: start: 2015
  5. PRILOSEC [Suspect]
     Active Substance: OMEPRAZOLE MAGNESIUM
     Indication: Gastrooesophageal reflux disease
     Dosage: GENERIC
     Route: 065
     Dates: start: 2015
  6. PRILOSEC [Suspect]
     Active Substance: OMEPRAZOLE MAGNESIUM
     Indication: Gastrooesophageal reflux disease
     Route: 048
     Dates: start: 20151116
  7. DEXILANT [Suspect]
     Active Substance: DEXLANSOPRAZOLE
     Indication: Gastrooesophageal reflux disease
     Route: 065
     Dates: start: 2001, end: 2009
  8. DEXILANT [Suspect]
     Active Substance: DEXLANSOPRAZOLE
     Indication: Gastrooesophageal reflux disease
     Route: 065
     Dates: start: 20010510
  9. DEXILANT [Suspect]
     Active Substance: DEXLANSOPRAZOLE
     Indication: Gastrooesophageal reflux disease
     Route: 065
     Dates: start: 2011, end: 2012
  10. DEXILANT [Suspect]
     Active Substance: DEXLANSOPRAZOLE
     Indication: Gastrooesophageal reflux disease
     Dosage: GENERIC
     Route: 065
     Dates: start: 2001, end: 2009
  11. DEXILANT [Suspect]
     Active Substance: DEXLANSOPRAZOLE
     Indication: Gastrooesophageal reflux disease
     Dosage: GENERIC
     Route: 065
     Dates: start: 2011, end: 2012
  12. DEXILANT [Suspect]
     Active Substance: DEXLANSOPRAZOLE
     Indication: Gastrooesophageal reflux disease
     Dosage: GENERIC
     Route: 065
     Dates: start: 20110921
  13. DEXILANT [Suspect]
     Active Substance: DEXLANSOPRAZOLE
     Indication: Gastrooesophageal reflux disease
     Route: 065
     Dates: start: 201202, end: 201505
  14. PREVACID [Suspect]
     Active Substance: LANSOPRAZOLE
     Indication: Gastrooesophageal reflux disease
     Route: 065
     Dates: start: 2001, end: 2009
  15. PREVACID [Suspect]
     Active Substance: LANSOPRAZOLE
     Indication: Gastrooesophageal reflux disease
     Route: 065
     Dates: start: 20010510
  16. PREVACID [Suspect]
     Active Substance: LANSOPRAZOLE
     Indication: Gastrooesophageal reflux disease
     Route: 065
     Dates: start: 2011, end: 2012
  17. PREVACID [Suspect]
     Active Substance: LANSOPRAZOLE
     Indication: Gastrooesophageal reflux disease
     Dosage: GENERIC
     Route: 065
     Dates: start: 2001, end: 2009
  18. PREVACID [Suspect]
     Active Substance: LANSOPRAZOLE
     Indication: Gastrooesophageal reflux disease
     Dosage: GENERIC
     Route: 065
     Dates: start: 2011, end: 2012
  19. PREVACID [Suspect]
     Active Substance: LANSOPRAZOLE
     Indication: Gastrooesophageal reflux disease
     Dosage: GENERIC
     Route: 065
     Dates: start: 20110921
  20. PROTONIX [Suspect]
     Active Substance: PANTOPRAZOLE SODIUM
     Indication: Gastrooesophageal reflux disease
     Route: 065
     Dates: start: 2001, end: 2009
  21. PROTONIX [Suspect]
     Active Substance: PANTOPRAZOLE SODIUM
     Indication: Gastrooesophageal reflux disease
     Route: 065
     Dates: start: 20010510
  22. PROTONIX [Suspect]
     Active Substance: PANTOPRAZOLE SODIUM
     Indication: Gastrooesophageal reflux disease
     Route: 065
     Dates: start: 2011, end: 2012
  23. PROTONIX [Suspect]
     Active Substance: PANTOPRAZOLE SODIUM
     Indication: Gastrooesophageal reflux disease
     Dosage: GENERIC
     Route: 065
     Dates: start: 2001, end: 2009
  24. PROTONIX [Suspect]
     Active Substance: PANTOPRAZOLE SODIUM
     Indication: Gastrooesophageal reflux disease
     Dosage: GENERIC
     Route: 065
     Dates: start: 2011, end: 2012
  25. PROTONIX [Suspect]
     Active Substance: PANTOPRAZOLE SODIUM
     Indication: Gastrooesophageal reflux disease
     Dosage: GENERIC
     Route: 065
     Dates: start: 20110921
  26. ATENOLOL [Concomitant]
     Active Substance: ATENOLOL
     Indication: Angina pectoris
     Dosage: 25.0MG UNKNOWN
     Route: 065
     Dates: start: 20050517
  27. ATENOLOL [Concomitant]
     Active Substance: ATENOLOL
     Indication: Angina pectoris
     Dosage: 25.0MG UNKNOWN
     Route: 065
     Dates: start: 2006, end: 2016
  28. CHLORDIAZEPOXIDE/DICYCLOVERINE [Concomitant]
     Indication: Gastrointestinal disorder
     Dosage: 5-2.5 MG
     Route: 065
     Dates: start: 20130305
  29. CHLORDIAZEPOXIDE/DICYCLOVERINE [Concomitant]
     Indication: Gastrointestinal disorder
     Route: 065
     Dates: start: 2013, end: 2016
  30. FLONASE [Concomitant]
     Active Substance: FLUTICASONE PROPIONATE
     Indication: Multiple allergies
     Route: 065
     Dates: start: 20020507
  31. FLONASE [Concomitant]
     Active Substance: FLUTICASONE PROPIONATE
     Indication: Multiple allergies
     Route: 065
     Dates: start: 2002, end: 2005
  32. CYCLOBENZAPRINE [Concomitant]
     Active Substance: CYCLOBENZAPRINE
     Indication: Muscle spasms
     Route: 065
     Dates: start: 2016
  33. DENAVIR [Concomitant]
     Active Substance: PENCICLOVIR
     Indication: Oral herpes
     Route: 065
     Dates: start: 20010404
  34. DENAVIR [Concomitant]
     Active Substance: PENCICLOVIR
     Indication: Oral herpes
     Route: 065
     Dates: start: 2001, end: 2009
  35. ASPIRIN [Concomitant]
     Active Substance: ASPIRIN
     Indication: Cardiac disorder
     Route: 048
     Dates: start: 20090707
  36. VITAMINS [Concomitant]
     Active Substance: VITAMINS
     Indication: Supplementation therapy
     Route: 065
  37. COENZYME Q10 [Concomitant]
     Active Substance: DIETARY SUPPLEMENT\UBIDECARENONE
     Indication: Supplementation therapy
     Route: 065
     Dates: start: 20081113
  38. NITROGLYCERIN [Concomitant]
     Active Substance: NITROGLYCERIN
     Indication: Coronary artery disease
     Route: 065
     Dates: start: 20040927
  39. HYDROCHLOROTHIAZIDE [Concomitant]
     Active Substance: HYDROCHLOROTHIAZIDE
     Indication: Blood pressure measurement
     Dosage: 12.5MG UNKNOWN
     Route: 065
     Dates: start: 20131202
  40. HYDROCHLOROTHIAZIDE [Concomitant]
     Active Substance: HYDROCHLOROTHIAZIDE
     Indication: Fluid retention
     Dosage: 12.5MG UNKNOWN
     Route: 065
     Dates: start: 20131202
  41. HYDROCHLOROTHIAZIDE [Concomitant]
     Active Substance: HYDROCHLOROTHIAZIDE
     Indication: Blood pressure measurement
     Dosage: 12.5MG UNKNOWN
     Route: 065
     Dates: start: 2013, end: 2016
  42. HYDROCHLOROTHIAZIDE [Concomitant]
     Active Substance: HYDROCHLOROTHIAZIDE
     Indication: Fluid retention
     Dosage: 12.5MG UNKNOWN
     Route: 065
     Dates: start: 2013, end: 2016
  43. LEVOCETIRIZINE [Concomitant]
     Active Substance: LEVOCETIRIZINE
     Indication: Antiallergic therapy
     Route: 065
     Dates: start: 20141205
  44. LEVOTHYROXINE [Concomitant]
     Active Substance: LEVOTHYROXINE
     Indication: Hyperthyroidism
     Route: 065
     Dates: start: 2013, end: 2016
  45. LIPITOR [Concomitant]
     Active Substance: ATORVASTATIN CALCIUM
     Indication: Blood cholesterol
     Dosage: 10.0MG UNKNOWN
     Route: 065
     Dates: start: 20130722
  46. LIPITOR [Concomitant]
     Active Substance: ATORVASTATIN CALCIUM
     Indication: Blood cholesterol
     Dosage: UNKNOWN
     Dates: start: 2016
  47. LOSARTAN [Concomitant]
     Active Substance: LOSARTAN
     Indication: Hypertension
     Dosage: 50.0MG UNKNOWN
     Route: 065
     Dates: start: 20140310
  48. LOSARTAN [Concomitant]
     Active Substance: LOSARTAN
     Indication: Hypertension
     Dosage: UNKNOWN
     Dates: start: 2014, end: 2016
  49. MOBIC [Concomitant]
     Active Substance: MELOXICAM
     Indication: Osteoarthritis
     Route: 065
     Dates: start: 20010308
  50. MOBIC [Concomitant]
     Active Substance: MELOXICAM
     Indication: Osteoarthritis
     Route: 065
     Dates: start: 2001, end: 2011
  51. NORCO [Concomitant]
     Active Substance: ACETAMINOPHEN\HYDROCODONE BITARTRATE
     Indication: Pain
     Route: 065
  52. PENNSAID [Concomitant]
     Active Substance: DICLOFENAC SODIUM
     Indication: Arthritis
     Route: 065
     Dates: start: 20110608
  53. PROAIR HFA 90 [Concomitant]
     Indication: Asthma
     Route: 065
     Dates: start: 20121203
  54. PROAIR HFA 90 [Concomitant]
     Indication: Asthma
     Route: 065
     Dates: start: 2014
  55. PROMETHAZINE [Concomitant]
     Active Substance: PROMETHAZINE HYDROCHLORIDE
     Indication: Antiallergic therapy
     Route: 065
     Dates: start: 20010829
  56. PROMETHAZINE [Concomitant]
     Active Substance: PROMETHAZINE HYDROCHLORIDE
     Indication: Antiallergic therapy
     Route: 065
     Dates: start: 2014, end: 2016
  57. REGLAN [Concomitant]
     Active Substance: METOCLOPRAMIDE HYDROCHLORIDE
     Indication: Gastrooesophageal reflux disease
     Route: 065
     Dates: start: 2016
  58. SINGULAIR [Concomitant]
     Active Substance: MONTELUKAST SODIUM
     Indication: Analgesic intervention supportive therapy
     Route: 065
     Dates: start: 20040618
  59. SINGULAIR [Concomitant]
     Active Substance: MONTELUKAST SODIUM
     Indication: Analgesic intervention supportive therapy
     Route: 065
     Dates: start: 2004, end: 2012
  60. SUCRALFATE [Concomitant]
     Active Substance: SUCRALFATE
     Indication: Ulcer
     Route: 065
     Dates: start: 20120510
  61. SUCRALFATE [Concomitant]
     Active Substance: SUCRALFATE
     Indication: Ulcer
     Route: 065
     Dates: start: 2012, end: 2014
  62. TOPAMAX [Concomitant]
     Active Substance: TOPIRAMATE
     Indication: Neuralgia
     Route: 065
     Dates: start: 20160511
  63. TRANSDERM SCOP [Concomitant]
     Active Substance: SCOPOLAMINE
     Indication: Nausea
     Route: 065
     Dates: start: 20011203
  64. TRANSDERM SCOP [Concomitant]
     Active Substance: SCOPOLAMINE
     Indication: Nausea
     Route: 065
     Dates: start: 2004, end: 2012
  65. THEOBROMA CACAO/GLUTAMIC ACID/CRATAEGUS LAEVIGATA FRUIT/TRAZODONE HYDR [Concomitant]
     Indication: Depression
     Route: 065
     Dates: start: 20031008
  66. THEOBROMA CACAO/GLUTAMIC ACID/CRATAEGUS LAEVIGATA FRUIT/TRAZODONE HYDR [Concomitant]
     Indication: Depression
     Route: 065
     Dates: start: 2004, end: 2016
  67. VALACYCLOVIR [Concomitant]
     Active Substance: VALACYCLOVIR HYDROCHLORIDE
     Indication: Oral herpes
     Route: 065
     Dates: start: 20091210
  68. VALACYCLOVIR [Concomitant]
     Active Substance: VALACYCLOVIR HYDROCHLORIDE
     Indication: Oral herpes
     Dates: start: 2016
  69. ALPRAZOLAM [Concomitant]
     Active Substance: ALPRAZOLAM
     Route: 065
     Dates: start: 20010320
  70. UNIRETIC [Concomitant]
     Active Substance: HYDROCHLOROTHIAZIDE\MOEXIPRIL HYDROCHLORIDE
     Dosage: 15-25 MG
     Route: 065
     Dates: start: 20010322
  71. DOXAZOSIN [Concomitant]
     Active Substance: DOXAZOSIN MESYLATE
     Route: 065
     Dates: start: 20010322
  72. PAXIL [Concomitant]
     Active Substance: PAROXETINE HYDROCHLORIDE
     Route: 065
     Dates: start: 20010322
  73. LORATADINE [Concomitant]
     Active Substance: LORATADINE
     Route: 065
     Dates: start: 20010326
  74. ZYRTEC [Concomitant]
     Active Substance: CETIRIZINE HYDROCHLORIDE
     Route: 065
     Dates: start: 20010419
  75. NASONEX [Concomitant]
     Active Substance: MOMETASONE FUROATE
     Route: 065
     Dates: start: 20010419
  76. BENZONATATE [Concomitant]
     Active Substance: BENZONATATE
     Route: 065
     Dates: start: 20010419
  77. IBUPROFEN [Concomitant]
     Active Substance: IBUPROFEN
     Route: 065
     Dates: start: 20010911

REACTIONS (7)
  - Atrial fibrillation [Fatal]
  - Cardiovascular disorder [Fatal]
  - Hypertension [Fatal]
  - Chronic kidney disease [Fatal]
  - Acute kidney injury [Unknown]
  - Renal failure [Unknown]
  - Tubulointerstitial nephritis [Unknown]

NARRATIVE: CASE EVENT DATE: 20060628
